FAERS Safety Report 4855394-X (Version None)
Quarter: 2005Q4

REPORT INFORMATION
  Report Type: 
  Country: None (occurrence: None)
  Receive Date: 20051125
  Receipt Date: 20050405
  Transmission Date: 20060501
  Serious: Yes (Hospitalization)
  Sender: FDA-Public Use
  Company Number: US-JNJFOC-20050105384

PATIENT
  Age: 43 Year
  Sex: Male
  Weight: 67.1324 kg

DRUGS (6)
  1. LEVAQUIN [Suspect]
     Indication: PNEUMONIA PRIMARY ATYPICAL
     Dates: start: 20041227
  2. PREDNISONE TAB [Concomitant]
  3. ALBUTEROL [Concomitant]
  4. AEROBID [Concomitant]
  5. Z PACK (ANTIBIOTICS) [Concomitant]
  6. .. [Concomitant]

REACTIONS (5)
  - DYSPNOEA [None]
  - MYOCARDIAL INFARCTION [None]
  - PLEURITIC PAIN [None]
  - VENTRICULAR EXTRASYSTOLES [None]
  - VENTRICULAR TACHYCARDIA [None]
